FAERS Safety Report 4339395-6 (Version None)
Quarter: 2004Q2

REPORT INFORMATION
  Report Type: 
  Country: None (occurrence: None)
  Receive Date: 20040412
  Receipt Date: 20040329
  Transmission Date: 20050107
  Serious: Yes (Other)
  Sender: FDA-Public Use
  Company Number: 2004011148

PATIENT
  Sex: Male

DRUGS (1)
  1. NEURONTIN [Suspect]
     Indication: ILL-DEFINED DISORDER

REACTIONS (6)
  - BODY TEMPERATURE DECREASED [None]
  - DECREASED APPETITE [None]
  - HYPOTENSION [None]
  - INSOMNIA [None]
  - PARALYSIS [None]
  - WEIGHT DECREASED [None]
